FAERS Safety Report 12996592 (Version 1)
Quarter: 2016Q4

REPORT INFORMATION
  Report Type: Spontaneous
  Country: US (occurrence: US)
  Receive Date: 20161204
  Receipt Date: 20161204
  Transmission Date: 20170207
  Serious: No
  Sender: FDA-Public Use
  Company Number: US-WARNER CHILCOTT, LLC-1060375

PATIENT
  Age: 16 Year
  Sex: Female

DRUGS (1)
  1. LO LOESTRIN FE [Suspect]
     Active Substance: ETHINYL ESTRADIOL\NORETHINDRONE ACETATE
     Indication: CONTRACEPTION
     Route: 048
     Dates: start: 2016

REACTIONS (7)
  - Body temperature increased [Recovered/Resolved]
  - Menstruation delayed [Not Recovered/Not Resolved]
  - Drug ineffective for unapproved indication [Not Recovered/Not Resolved]
  - Inappropriate schedule of drug administration [None]
  - Product use issue [None]
  - Drug administered to patient of inappropriate age [None]
  - Malaise [Recovered/Resolved]

NARRATIVE: CASE EVENT DATE: 2016
